FAERS Safety Report 5786444-4 (Version None)
Quarter: 2008Q2

REPORT INFORMATION
  Report Type: 
  Country: None (occurrence: None)
  Receive Date: 20080619
  Receipt Date: 20080618
  Transmission Date: 20081010
  Serious: Yes (Other)
  Sender: FDA-Public Use
  Company Number: 2008AP000287

PATIENT
  Age: 23 Year
  Sex: Female

DRUGS (17)
  1. PAROXETINE HCL [Suspect]
     Indication: ANXIETY
     Dosage: 20 MG; TAB; PO; QD; 20 MG; TAB; PO; QD; 0.5 TAB; TAB; PO; QD; 10 ML; QD PO; ORAL_LIQ_PO
     Route: 048
     Dates: start: 19990602, end: 19990818
  2. PAROXETINE HCL [Suspect]
     Indication: PANIC ATTACK
     Dosage: 20 MG; TAB; PO; QD; 20 MG; TAB; PO; QD; 0.5 TAB; TAB; PO; QD; 10 ML; QD PO; ORAL_LIQ_PO
     Route: 048
     Dates: start: 19990602, end: 19990818
  3. PAROXETINE HCL [Suspect]
     Indication: ANXIETY
     Dosage: 20 MG; TAB; PO; QD; 20 MG; TAB; PO; QD; 0.5 TAB; TAB; PO; QD; 10 ML; QD PO; ORAL_LIQ_PO
     Route: 048
     Dates: start: 20000926, end: 20000930
  4. PAROXETINE HCL [Suspect]
     Indication: PANIC ATTACK
     Dosage: 20 MG; TAB; PO; QD; 20 MG; TAB; PO; QD; 0.5 TAB; TAB; PO; QD; 10 ML; QD PO; ORAL_LIQ_PO
     Route: 048
     Dates: start: 20000926, end: 20000930
  5. PAROXETINE HCL [Suspect]
     Indication: ANXIETY
     Dosage: 20 MG; TAB; PO; QD; 20 MG; TAB; PO; QD; 0.5 TAB; TAB; PO; QD; 10 ML; QD PO; ORAL_LIQ_PO
     Route: 048
     Dates: start: 20010103, end: 20020101
  6. PAROXETINE HCL [Suspect]
     Indication: PANIC ATTACK
     Dosage: 20 MG; TAB; PO; QD; 20 MG; TAB; PO; QD; 0.5 TAB; TAB; PO; QD; 10 ML; QD PO; ORAL_LIQ_PO
     Route: 048
     Dates: start: 20010103, end: 20020101
  7. PAROXETINE HCL [Suspect]
     Indication: ANXIETY
     Dosage: 20 MG; TAB; PO; QD; 20 MG; TAB; PO; QD; 0.5 TAB; TAB; PO; QD; 10 ML; QD PO; ORAL_LIQ_PO
     Route: 048
     Dates: start: 20030214, end: 20030519
  8. PAROXETINE HCL [Suspect]
     Indication: PANIC ATTACK
     Dosage: 20 MG; TAB; PO; QD; 20 MG; TAB; PO; QD; 0.5 TAB; TAB; PO; QD; 10 ML; QD PO; ORAL_LIQ_PO
     Route: 048
     Dates: start: 20030214, end: 20030519
  9. PAROXETINE HCL [Suspect]
     Indication: ANXIETY
     Dosage: 20 MG; TAB; PO; QD; 20 MG; TAB; PO; QD; 0.5 TAB; TAB; PO; QD; 10 ML; QD PO; ORAL_LIQ_PO
     Route: 048
     Dates: start: 20020430
  10. PAROXETINE HCL [Suspect]
     Indication: PANIC ATTACK
     Dosage: 20 MG; TAB; PO; QD; 20 MG; TAB; PO; QD; 0.5 TAB; TAB; PO; QD; 10 ML; QD PO; ORAL_LIQ_PO
     Route: 048
     Dates: start: 20020430
  11. PAROXETINE HCL [Suspect]
     Indication: ANXIETY
     Dosage: 20 MG; TAB; PO; QD; 20 MG; TAB; PO; QD; 0.5 TAB; TAB; PO; QD; 10 ML; QD PO; ORAL_LIQ_PO
     Route: 048
     Dates: start: 20020901
  12. PAROXETINE HCL [Suspect]
     Indication: PANIC ATTACK
     Dosage: 20 MG; TAB; PO; QD; 20 MG; TAB; PO; QD; 0.5 TAB; TAB; PO; QD; 10 ML; QD PO; ORAL_LIQ_PO
     Route: 048
     Dates: start: 20020901
  13. PAROXETINE HCL [Suspect]
     Indication: ANXIETY
     Dosage: 20 MG; TAB; PO; QD; 20 MG; TAB; PO; QD; 0.5 TAB; TAB; PO; QD; 10 ML; QD PO; ORAL_LIQ_PO
     Route: 048
     Dates: start: 20040425
  14. PAROXETINE HCL [Suspect]
     Indication: PANIC ATTACK
     Dosage: 20 MG; TAB; PO; QD; 20 MG; TAB; PO; QD; 0.5 TAB; TAB; PO; QD; 10 ML; QD PO; ORAL_LIQ_PO
     Route: 048
     Dates: start: 20040425
  15. PAROXETINE HCL [Suspect]
     Indication: ANXIETY
     Dosage: 20 MG; TAB; PO; QD; 20 MG; TAB; PO; QD; 0.5 TAB; TAB; PO; QD; 10 ML; QD PO; ORAL_LIQ_PO
     Route: 048
     Dates: start: 20050907
  16. PAROXETINE HCL [Suspect]
     Indication: PANIC ATTACK
     Dosage: 20 MG; TAB; PO; QD; 20 MG; TAB; PO; QD; 0.5 TAB; TAB; PO; QD; 10 ML; QD PO; ORAL_LIQ_PO
     Route: 048
     Dates: start: 20050907
  17. CINNARIZINE (CINNARIZINE) [Concomitant]

REACTIONS (42)
  - ABDOMINAL PAIN [None]
  - AGGRESSION [None]
  - AGITATION [None]
  - ANXIETY [None]
  - BALANCE DISORDER [None]
  - CAESAREAN SECTION [None]
  - CHEST DISCOMFORT [None]
  - CONDITION AGGRAVATED [None]
  - DIZZINESS [None]
  - DRUG EXPOSURE DURING PREGNANCY [None]
  - DYSPAREUNIA [None]
  - DYSPEPSIA [None]
  - DYSPNOEA [None]
  - ENDOMETRIOSIS [None]
  - HEADACHE [None]
  - HOT FLUSH [None]
  - HYPERHIDROSIS [None]
  - LEGAL PROBLEM [None]
  - LETHARGY [None]
  - LOSS OF LIBIDO [None]
  - LOWER RESPIRATORY TRACT INFECTION [None]
  - MEMORY IMPAIRMENT [None]
  - MIGRAINE [None]
  - MOOD ALTERED [None]
  - MOOD SWINGS [None]
  - NAUSEA [None]
  - NECK PAIN [None]
  - OLIGOMENORRHOEA [None]
  - PAIN [None]
  - PALPITATIONS [None]
  - PANIC REACTION [None]
  - PARAESTHESIA [None]
  - POLYCYSTIC OVARIES [None]
  - POST PROCEDURAL COMPLICATION [None]
  - RASH [None]
  - SINUSITIS [None]
  - SLEEP DISORDER [None]
  - TREMOR [None]
  - VISION BLURRED [None]
  - VISUAL DISTURBANCE [None]
  - WEIGHT INCREASED [None]
  - WITHDRAWAL SYNDROME [None]
